FAERS Safety Report 15723670 (Version 2)
Quarter: 2019Q1

REPORT INFORMATION
  Report Type: Spontaneous
  Country: DE (occurrence: DE)
  Receive Date: 20181214
  Receipt Date: 20190118
  Transmission Date: 20190417
  Serious: Yes (Hospitalization, Other)
  Sender: FDA-Public Use
  Company Number: DE-ALLERGAN-1857446US

PATIENT
  Age: 31 Year

DRUGS (2)
  1. VISTABEL [Suspect]
     Active Substance: BOTULINUM TOXIN TYPE A
     Dosage: UNK, SINGLE
     Dates: start: 20180306, end: 20180306
  2. VISTABEL [Suspect]
     Active Substance: BOTULINUM TOXIN TYPE A
     Indication: SKIN WRINKLING
     Dosage: ACTUAL: 6 INJECTION SITES WITH 2 UNITS, RESPECTIVELY
     Route: 030
     Dates: start: 20181112, end: 20181112

REACTIONS (6)
  - Injection site pain [Recovering/Resolving]
  - Injection site discolouration [Recovered/Resolved]
  - Pupils unequal [Recovering/Resolving]
  - Diplopia [Recovered/Resolved]
  - Photosensitivity reaction [Recovered/Resolved]
  - Eye pain [Recovered/Resolved with Sequelae]

NARRATIVE: CASE EVENT DATE: 20181112
